FAERS Safety Report 9588725 (Version 1)
Quarter: 2013Q4

REPORT INFORMATION
  Report Type: Spontaneous
  Country: US (occurrence: US)
  Receive Date: 20131003
  Receipt Date: 20131003
  Transmission Date: 20140711
  Serious: No
  Sender: FDA-Public Use
  Company Number: US-AMGEN-USASP2012065851

PATIENT
  Age: 64 Year
  Sex: Male
  Weight: 95.23 kg

DRUGS (9)
  1. ENBREL [Suspect]
     Indication: RHEUMATOID ARTHRITIS
     Dosage: 50 MG, QWK
     Route: 058
  2. METHOTREXATE [Concomitant]
     Dosage: 50 MG/2ML, UNK
  3. LISINOPRIL [Concomitant]
     Dosage: 40 MG, UNK
  4. NAPROXEN [Concomitant]
     Dosage: UNK
  5. TRAMADOL HCL [Concomitant]
     Dosage: 50 MG, UNK
  6. B-12 [Concomitant]
     Dosage: 1000 MUG, UNK
  7. D3 [Concomitant]
     Dosage: 1000 UNIT, UNK
  8. PREDNISONE [Concomitant]
     Dosage: 5 MG, UNK
  9. FOLIC ACID [Concomitant]
     Dosage: UNK

REACTIONS (4)
  - Nasopharyngitis [Recovered/Resolved]
  - Productive cough [Recovered/Resolved]
  - Chills [Recovered/Resolved]
  - Nasal congestion [Recovered/Resolved]
